FAERS Safety Report 12647321 (Version 1)
Quarter: 2016Q3

REPORT INFORMATION
  Report Type: Spontaneous
  Country: US (occurrence: None)
  Receive Date: 20160811
  Receipt Date: 20160811
  Transmission Date: 20161109
  Serious: Yes (Hospitalization)
  Sender: FDA-Public Use
  Company Number: None

PATIENT
  Age: 54 Year
  Sex: Male
  Weight: 104.33 kg

DRUGS (1)
  1. LISINOPRIL, 10 MG [Suspect]
     Active Substance: LISINOPRIL
     Route: 048

REACTIONS (2)
  - Endotracheal intubation [None]
  - Swollen tongue [None]

NARRATIVE: CASE EVENT DATE: 20160713
